FAERS Safety Report 7883417-2 (Version None)
Quarter: 2011Q4

REPORT INFORMATION
  Report Type: 
  Country: None (occurrence: None)
  Receive Date: 20111031
  Receipt Date: 20111018
  Transmission Date: 20120403
  Serious: Yes (Hospitalization)
  Sender: FDA-Public Use
  Company Number: IR-006619

PATIENT
  Age: 31 Year
  Sex: Female

DRUGS (3)
  1. FOLLICLE STIMULATNG HORMONE, RECOMBINANT (FOLLICLE STIMULATING HORMONE [Suspect]
     Indication: IN VITRO FERTILISATION
  2. CHORIONIC GONADOTROPIN [Suspect]
     Indication: IN VITRO FERTILISATION
     Dosage: INTRAMUSCULAR
  3. GONADOTROPIN RELEASING HORMONE (GNRH) [Suspect]
     Indication: IN VITRO FERTILISATION

REACTIONS (7)
  - HAEMORRHAGIC OVARIAN CYST [None]
  - OVARIAN RUPTURE [None]
  - OVARIAN TORSION [None]
  - OVARIAN HYPERSTIMULATION SYNDROME [None]
  - SHOCK [None]
  - HAEMATOCRIT DECREASED [None]
  - WHITE BLOOD CELL COUNT INCREASED [None]
